FAERS Safety Report 7796600-1 (Version None)
Quarter: 2011Q4

REPORT INFORMATION
  Report Type: 
  Country: None (occurrence: None)
  Receive Date: 20111005
  Receipt Date: 20110923
  Transmission Date: 20120403
  Serious: Yes (Death, Hospitalization, Other)
  Sender: FDA-Public Use
  Company Number: CA-ELI_LILLY_AND_COMPANY-CA201109006619

PATIENT
  Sex: Male

DRUGS (8)
  1. ZYPREXA [Suspect]
     Dosage: 15 MG, UNK
  2. ZYPREXA [Suspect]
     Dosage: 5 MG, UNK
  3. ZYPREXA [Suspect]
     Dosage: 7.5 MG, UNK
  4. RESTORIL [Concomitant]
  5. CELEXA [Concomitant]
  6. CLONAZEPAM [Concomitant]
  7. ZYPREXA [Suspect]
     Indication: MAJOR DEPRESSION
     Dosage: 2.5 MG, EACH EVENING
  8. ZOLOFT [Concomitant]

REACTIONS (13)
  - CATARACT [None]
  - DEATH [None]
  - WHITE BLOOD CELL COUNT INCREASED [None]
  - MYOCARDIAL INFARCTION [None]
  - DIABETES MELLITUS [None]
  - CEREBROVASCULAR ACCIDENT [None]
  - RENAL FAILURE CHRONIC [None]
  - PERIPHERAL VASCULAR DISORDER [None]
  - HYPOGLYCAEMIA [None]
  - INFECTION [None]
  - HYPERTENSION [None]
  - HYPERLIPIDAEMIA [None]
  - ANAEMIA [None]
